FAERS Safety Report 9882147 (Version 2)
Quarter: 2014Q1

REPORT INFORMATION
  Report Type: Spontaneous
  Country: US (occurrence: US)
  Receive Date: 20140207
  Receipt Date: 20140327
  Transmission Date: 20141002
  Serious: Yes (Other)
  Sender: FDA-Public Use
  Company Number: US-BRISTOL-MYERS SQUIBB COMPANY-20089611

PATIENT
  Age: 64 Year
  Sex: Male

DRUGS (12)
  1. SYMLIN [Suspect]
     Indication: TYPE 2 DIABETES MELLITUS
     Route: 058
     Dates: start: 20100722, end: 20130402
  2. LANTUS [Concomitant]
  3. NOVOLOG [Concomitant]
  4. SIMVASTATIN [Concomitant]
  5. METFORMIN [Concomitant]
  6. ALLOPURINOL [Concomitant]
  7. HCTZ [Concomitant]
  8. LISINOPRIL [Concomitant]
  9. VITAMIN B12 [Concomitant]
  10. VITAMIN D [Concomitant]
  11. MVI [Concomitant]
  12. ACIDOPHILUS [Concomitant]

REACTIONS (1)
  - Prostate cancer [Not Recovered/Not Resolved]
